FAERS Safety Report 9899345 (Version 1)
Quarter: 2014Q1

REPORT INFORMATION
  Report Type: Spontaneous
  Country: US (occurrence: US)
  Receive Date: 20140214
  Receipt Date: 20140214
  Transmission Date: 20141002
  Serious: Yes (Hospitalization)
  Sender: FDA-Public Use
  Company Number: US-ASTRAZENECA-2014SE09372

PATIENT
  Age: 63 Year
  Sex: Male

DRUGS (7)
  1. LISINOPRIL [Suspect]
     Route: 048
  2. BRILINTA [Suspect]
     Indication: ACUTE CORONARY SYNDROME
     Route: 048
     Dates: start: 2014, end: 2014
  3. BRILINTA [Suspect]
     Indication: STENT PLACEMENT
     Route: 048
     Dates: start: 2014, end: 2014
  4. STATIN (UNSPECIFIED) [Concomitant]
  5. HYDROCHLOROTHIAZIDE [Concomitant]
  6. ASPIRIN [Concomitant]
  7. WELLBUTRIN [Concomitant]

REACTIONS (2)
  - Acute coronary syndrome [Unknown]
  - Dyspnoea [Unknown]
